FAERS Safety Report 15587550 (Version 1)
Quarter: 2018Q4

REPORT INFORMATION
  Report Type: Spontaneous
  Country: GB (occurrence: GB)
  Receive Date: 20181105
  Receipt Date: 20181105
  Transmission Date: 20190205
  Serious: Yes (Other)
  Sender: FDA-Public Use
  Company Number: GB-PFIZER INC-2018444171

PATIENT
  Age: 10 Year
  Sex: Female

DRUGS (2)
  1. SAIZEN [Concomitant]
     Active Substance: SOMATROPIN
     Dosage: WHEN IN HOSPITAL OR AT RESPITE CARE
  2. GENOTROPIN [Suspect]
     Active Substance: SOMATROPIN
     Dosage: 0.8 MG, WHEN IN HOSPITAL OR AT RESPITE CARE

REACTIONS (1)
  - Lower respiratory tract infection [Unknown]
